FAERS Safety Report 21379641 (Version 2)
Quarter: 2023Q2

REPORT INFORMATION
  Report Type: Spontaneous
  Country: US (occurrence: US)
  Receive Date: 20220927
  Receipt Date: 20230607
  Transmission Date: 20230721
  Serious: Yes (Other)
  Sender: FDA-Public Use
  Company Number: US-SUN PHARMACEUTICAL INDUSTRIES LTD-2022R1-356342

PATIENT
  Age: 8 Month
  Sex: Male

DRUGS (14)
  1. METHADONE [Suspect]
     Active Substance: METHADONE HYDROCHLORIDE
     Indication: Product used for unknown indication
     Dosage: 0.75 MILLIGRAM/KILOGRAM, DAILY
     Route: 065
  2. LINEZOLID [Interacting]
     Active Substance: LINEZOLID
     Indication: Pneumonia bacterial
     Dosage: 10 MILLIGRAM/KILOGRAM, TID/DOSE
     Route: 065
  3. BOSENTAN [Concomitant]
     Active Substance: BOSENTAN
     Indication: Product used for unknown indication
     Dosage: UNK
     Route: 065
  4. CHLOROTHIAZIDE [Concomitant]
     Active Substance: CHLOROTHIAZIDE
     Indication: Product used for unknown indication
     Dosage: UNK
     Route: 065
  5. CHOLECALCIFEROL [Concomitant]
     Active Substance: CHOLECALCIFEROL
     Indication: Product used for unknown indication
     Dosage: UNK
     Route: 065
  6. FUROSEMIDE [Concomitant]
     Active Substance: FUROSEMIDE
     Indication: Product used for unknown indication
     Dosage: UNK
     Route: 065
  7. LANSOPRAZOLE [Concomitant]
     Active Substance: LANSOPRAZOLE
     Indication: Product used for unknown indication
     Dosage: UNK
     Route: 065
  8. LORAZEPAM [Concomitant]
     Active Substance: LORAZEPAM
     Indication: Product used for unknown indication
     Dosage: UNK
     Route: 065
  9. MELATONIN [Concomitant]
     Active Substance: MELATONIN
     Indication: Product used for unknown indication
     Dosage: UNK
     Route: 065
  10. SPIRONOLACTONE [Concomitant]
     Active Substance: SPIRONOLACTONE
     Indication: Product used for unknown indication
     Dosage: UNK
     Route: 065
  11. MORPHINE [Concomitant]
     Active Substance: MORPHINE
     Indication: Product used for unknown indication
     Dosage: 50 MILLIGRAM/KILOGRAM/HR
     Route: 065
  12. MORPHINE [Concomitant]
     Active Substance: MORPHINE
     Dosage: 50 MILLIGRAM/KILOGRAM/HR
     Route: 065
  13. MORPHINE [Concomitant]
     Active Substance: MORPHINE
     Dosage: UNK,WEANED DOWN SLOWLY
     Route: 065
  14. DEXMEDETOMIDINE [Concomitant]
     Active Substance: DEXMEDETOMIDINE
     Indication: Product used for unknown indication
     Dosage: 1.2 MICROGRAM/KILOGRAM/HR
     Route: 065

REACTIONS (2)
  - Serotonin syndrome [Unknown]
  - Drug interaction [Unknown]
